FAERS Safety Report 21104300 (Version 8)
Quarter: 2022Q3

REPORT INFORMATION
  Report Type: Spontaneous
  Country: US (occurrence: US)
  Receive Date: 20220720
  Receipt Date: 20220923
  Transmission Date: 20221026
  Serious: No
  Sender: FDA-Public Use
  Company Number: US-UNITED THERAPEUTICS-UNT-2022-015985

PATIENT
  Sex: Female
  Weight: 77.098 kg

DRUGS (13)
  1. TYVASO [Suspect]
     Active Substance: TREPROSTINIL
     Indication: Pulmonary arterial hypertension
     Dosage: UNK
     Dates: start: 20200804
  2. TYVASO [Suspect]
     Active Substance: TREPROSTINIL
     Dosage: 66 ?G, QID
     Dates: end: 20220721
  3. TYVASO [Suspect]
     Active Substance: TREPROSTINIL
     Dosage: 66 ?G, QID
     Dates: start: 202208
  4. TYVASO [Suspect]
     Active Substance: TREPROSTINIL
     Dosage: 66 ?G, QID
     Dates: start: 20220831
  5. TYVASO DPI [Suspect]
     Active Substance: TREPROSTINIL
     Indication: Pulmonary arterial hypertension
     Dosage: 64 ?G, QID
     Dates: start: 20220722, end: 202208
  6. TYVASO DPI [Suspect]
     Active Substance: TREPROSTINIL
     Indication: Pulmonary arterial hypertension
     Dosage: UNK
  7. OFEV [Suspect]
     Active Substance: NINTEDANIB
     Indication: Product used for unknown indication
     Dosage: UNK
     Route: 065
  8. PREDNISONE [Suspect]
     Active Substance: PREDNISONE
     Indication: Paranasal sinus hypersecretion
     Dosage: UNK
     Route: 065
     Dates: start: 2022
  9. PREDNISONE [Suspect]
     Active Substance: PREDNISONE
     Indication: Upper-airway cough syndrome
  10. PREDNISONE [Suspect]
     Active Substance: PREDNISONE
     Indication: Middle ear effusion
  11. TADALAFIL [Concomitant]
     Active Substance: TADALAFIL
     Indication: Product used for unknown indication
     Dosage: UNK
     Route: 065
  12. ELIQUIS [Concomitant]
     Active Substance: APIXABAN
     Indication: Product used for unknown indication
     Dosage: UNK
     Route: 065
  13. DILTIAZEM [Concomitant]
     Active Substance: DILTIAZEM
     Indication: Product used for unknown indication
     Dosage: UNK
     Route: 065

REACTIONS (17)
  - Sinus headache [Recovered/Resolved]
  - Paranasal sinus discomfort [Recovered/Resolved]
  - Dizziness [Recovered/Resolved]
  - Diarrhoea [Recovered/Resolved]
  - Cough [Recovering/Resolving]
  - Vulvovaginal pruritus [Unknown]
  - Erythema [Unknown]
  - Skin irritation [Unknown]
  - Rash [Unknown]
  - Middle ear effusion [Unknown]
  - Secretion discharge [Unknown]
  - Headache [Unknown]
  - Paranasal sinus hypersecretion [Unknown]
  - Upper-airway cough syndrome [Unknown]
  - Oxygen saturation decreased [Recovering/Resolving]
  - Sinusitis [Unknown]
  - Nasal congestion [Unknown]

NARRATIVE: CASE EVENT DATE: 20220101
